FAERS Safety Report 23619924 (Version 1)
Quarter: 2024Q1

REPORT INFORMATION
  Report Type: Other
  Country: US (occurrence: None)
  Receive Date: 20240312
  Receipt Date: 20240312
  Transmission Date: 20240410
  Serious: Yes (Hospitalization)
  Sender: FDA-Public Use
  Company Number: US-ROCHE-3493437

PATIENT
  Sex: Male
  Weight: 84.444 kg

DRUGS (2)
  1. TECENTRIQ [Suspect]
     Active Substance: ATEZOLIZUMAB
     Indication: Hepatocellular carcinoma
     Dosage: 17 CYCLES EVERY 21 DAYS, DATE OF TREATMENT: 21/DEC/2023
     Route: 042
     Dates: start: 20231130
  2. ZIRABEV [Concomitant]
     Active Substance: BEVACIZUMAB-BVZR
     Dosage: 17 CYCLES EVERY 21 DAYS
     Route: 042
     Dates: start: 20231130

REACTIONS (4)
  - Rectal haemorrhage [Recovered/Resolved]
  - Liver injury [Unknown]
  - Clostridium difficile infection [Recovered/Resolved]
  - Encephalopathy [Recovered/Resolved]

NARRATIVE: CASE EVENT DATE: 20240112
